FAERS Safety Report 7638477-0 (Version None)
Quarter: 2011Q3

REPORT INFORMATION
  Report Type: 
  Country: None (occurrence: None)
  Receive Date: 20110726
  Receipt Date: 20110726
  Transmission Date: 20111222
  Serious: Yes (Death)
  Sender: FDA-Public Use
  Company Number: None

PATIENT
  Age: 79 Year
  Sex: Female
  Weight: 129.2752 kg

DRUGS (3)
  1. TYLENOL-500 [Concomitant]
  2. NOREPINEPHRINE BITARTRATE [Suspect]
     Indication: CARDIAC FAILURE CONGESTIVE
     Dosage: 4MG/4ML IV
     Route: 042
     Dates: start: 20050613
  3. XANAX [Concomitant]

REACTIONS (2)
  - MEDICATION ERROR [None]
  - DRUG DISPENSING ERROR [None]
